FAERS Safety Report 7439424-7 (Version None)
Quarter: 2011Q2

REPORT INFORMATION
  Report Type: 
  Country: None (occurrence: None)
  Receive Date: 20110427
  Receipt Date: 20110420
  Transmission Date: 20111010
  Serious: Yes (Other)
  Sender: FDA-Public Use
  Company Number: TN-ASTELLAS-2011EU002329

PATIENT
  Age: 38 Year
  Sex: Male

DRUGS (4)
  1. TACROLIMUS [Interacting]
     Dosage: 2 MG/DAY, UNKNOWN/D
     Route: 065
  2. TACROLIMUS [Interacting]
     Indication: RENAL TRANSPLANT
     Dosage: 10 MG/DAY, UNKNOWN/D
     Route: 065
  3. MYCOPHENOLIC ACID [Suspect]
     Indication: RENAL TRANSPLANT
     Dosage: 1500 MG/DAY, UNKNOWN/D
     Route: 065
  4. PREDNISONE [Suspect]
     Indication: RENAL TRANSPLANT
     Dosage: 10 MG/DAY, UNKNOWN/D
     Route: 065

REACTIONS (3)
  - DRUG LEVEL INCREASED [None]
  - RENAL IMPAIRMENT [None]
  - DRUG INTERACTION [None]
